FAERS Safety Report 6829560-8 (Version None)
Quarter: 2010Q3

REPORT INFORMATION
  Report Type: 
  Country: None (occurrence: None)
  Receive Date: 20100709
  Receipt Date: 20070407
  Transmission Date: 20110219
  Serious: No
  Sender: FDA-Public Use
  Company Number: US-PFIZER INC-2007014403

PATIENT
  Sex: Female
  Weight: 61.69 kg

DRUGS (2)
  1. CHANTIX [Suspect]
     Indication: SMOKING CESSATION THERAPY
     Dates: start: 20070126
  2. PREVACID [Concomitant]

REACTIONS (4)
  - ABDOMINAL DISCOMFORT [None]
  - AGGRESSION [None]
  - HEADACHE [None]
  - TREMOR [None]
